FAERS Safety Report 9250272 (Version 3)
Quarter: 2013Q2

REPORT INFORMATION
  Report Type: Spontaneous
  Country: FI (occurrence: FI)
  Receive Date: 20130424
  Receipt Date: 20130508
  Transmission Date: 20140414
  Serious: Yes (Other)
  Sender: FDA-Public Use
  Company Number: FI-AMGEN-FINSP2013026072

PATIENT
  Age: 53 Year
  Sex: Female

DRUGS (5)
  1. NEULASTA [Suspect]
     Indication: PROPHYLAXIS
     Dosage: 6 MG/DAY
     Route: 058
     Dates: start: 20130315, end: 20130315
  2. TAXOTERE [Concomitant]
     Indication: BREAST CANCER
     Dosage: UNK
     Dates: start: 20130314
  3. GASTERIX [Concomitant]
     Dosage: 30 MG, DAILY
     Route: 048
  4. CARDIOL                            /00183101/ [Concomitant]
     Dosage: 12.5 MG, DAILY
     Route: 048
  5. LINATIL COMP [Concomitant]
     Dosage: 20/12.5 MG/DAILY
     Route: 048

REACTIONS (2)
  - Febrile neutropenia [Unknown]
  - Drug ineffective [Unknown]
